FAERS Safety Report 6972419-6 (Version None)
Quarter: 2010Q3

REPORT INFORMATION
  Report Type: 
  Country: None (occurrence: None)
  Receive Date: 20100824
  Receipt Date: 20100512
  Transmission Date: 20110219
  Serious: No
  Sender: FDA-Public Use
  Company Number: 308571

PATIENT
  Sex: Female

DRUGS (2)
  1. VICTOZA [Suspect]
     Indication: TYPE 2 DIABETES MELLITUS
     Dosage: UNK,  SUBCUTANEOUS
     Route: 058
     Dates: start: 20100401, end: 20100501
  2. VICTOZA [Suspect]
     Indication: TYPE 2 DIABETES MELLITUS
     Dosage: UNK,  SUBCUTANEOUS
     Route: 058
     Dates: start: 20100501

REACTIONS (1)
  - GASTROOESOPHAGEAL REFLUX DISEASE [None]
